FAERS Safety Report 5160114-8 (Version None)
Quarter: 2006Q4

REPORT INFORMATION
  Report Type: 
  Country: None (occurrence: None)
  Receive Date: 20061129
  Receipt Date: 20061127
  Transmission Date: 20070319
  Serious: Yes (Other)
  Sender: FDA-Public Use
  Company Number: US-GLAXOSMITHKLINE-A0628658A

PATIENT
  Age: 84 Year
  Sex: Male

DRUGS (3)
  1. CITRUCEL CAPLETS [Suspect]
     Indication: CONSTIPATION
     Dosage: 1CAPL UNKNOWN
     Route: 048
     Dates: end: 20061119
  2. REQUIP [Concomitant]
     Dosage: 5MG THREE TIMES PER DAY
  3. LEVODOPA [Concomitant]

REACTIONS (2)
  - CHOKING [None]
  - COUGH [None]
